FAERS Safety Report 9012524 (Version 2)
Quarter: 2013Q1

REPORT INFORMATION
  Report Type: Spontaneous
  Country: CA (occurrence: CA)
  Receive Date: 20130114
  Receipt Date: 20130131
  Transmission Date: 20140127
  Serious: Yes (Hospitalization)
  Sender: FDA-Public Use
  Company Number: CA-PFIZER INC-2013010903

PATIENT
  Sex: Male

DRUGS (5)
  1. CHAMPIX [Suspect]
     Indication: SMOKING CESSATION THERAPY
     Dosage: 1.0 MG, 2X/DAY
     Route: 048
     Dates: start: 20121018, end: 20130119
  2. INSULIN [Concomitant]
     Indication: DIABETES MELLITUS
     Dosage: UNK
  3. METFORMIN [Concomitant]
     Indication: DIABETES MELLITUS
     Dosage: UNK
  4. ACCUPRIL [Concomitant]
     Indication: BLOOD PRESSURE INCREASED
     Dosage: UNK
  5. NORVASC [Concomitant]
     Indication: BLOOD PRESSURE INCREASED
     Dosage: 5 MG, 1X/DAY

REACTIONS (1)
  - Hypertension [Recovering/Resolving]
